FAERS Safety Report 5338740-2 (Version None)
Quarter: 2007Q2

REPORT INFORMATION
  Report Type: 
  Country: None (occurrence: None)
  Receive Date: 20070328
  Receipt Date: 20061129
  Transmission Date: 20071010
  Serious: Yes (Hospitalization, Other)
  Sender: FDA-Public Use
  Company Number: 13589957

PATIENT
  Age: 23 Year
  Sex: Male

DRUGS (3)
  1. EMSAM [Suspect]
     Dosage: 6 MILLIGRAM, 1/1 DAY
     Dates: start: 20061125, end: 20061126
  2. ADDERALL 10 [Suspect]
  3. WELLBUTRIN [Suspect]

REACTIONS (2)
  - MULTIPLE DRUG OVERDOSE [None]
  - SUICIDE ATTEMPT [None]
